FAERS Safety Report 6453151-4 (Version None)
Quarter: 2009Q4

REPORT INFORMATION
  Report Type: 
  Country: None (occurrence: None)
  Receive Date: 20091124
  Receipt Date: 20091116
  Transmission Date: 20100525
  Serious: Yes (Other)
  Sender: FDA-Public Use
  Company Number: US-JNJFOC-20091104837

PATIENT
  Sex: Female
  Weight: 113.4 kg

DRUGS (2)
  1. REMICADE [Suspect]
     Route: 042
     Dates: start: 20090902, end: 20091104
  2. REMICADE [Suspect]
     Indication: CROHN'S DISEASE
     Route: 042
     Dates: start: 20090902, end: 20091104

REACTIONS (1)
  - VAGINAL HAEMORRHAGE [None]
